FAERS Safety Report 8025207-6 (Version None)
Quarter: 2012Q1

REPORT INFORMATION
  Report Type: 
  Country: None (occurrence: None)
  Receive Date: 20120105
  Receipt Date: 20111226
  Transmission Date: 20120608
  Serious: Yes (Death)
  Sender: FDA-Public Use
  Company Number: TW-GLAXOSMITHKLINE-B0772804A

PATIENT
  Age: 21 Year
  Sex: Male

DRUGS (1)
  1. LAMOTRIGINE [Suspect]
     Indication: CONVULSION
     Route: 065

REACTIONS (4)
  - DRUG RASH WITH EOSINOPHILIA AND SYSTEMIC SYMPTOMS [None]
  - HEPATIC FAILURE [None]
  - RESPIRATORY FAILURE [None]
  - OBLITERATIVE BRONCHIOLITIS [None]
